FAERS Safety Report 21617490 (Version 6)
Quarter: 2023Q2

REPORT INFORMATION
  Report Type: Spontaneous
  Country: US (occurrence: US)
  Receive Date: 20221119
  Receipt Date: 20230414
  Transmission Date: 20230722
  Serious: Yes (Hospitalization, Other)
  Sender: FDA-Public Use
  Company Number: US-UNITED THERAPEUTICS-UNT-2022-027668

PATIENT
  Age: 79 Year
  Sex: Female
  Weight: 71.202 kg

DRUGS (6)
  1. TYVASO [Suspect]
     Active Substance: TREPROSTINIL
     Indication: Pulmonary arterial hypertension
     Dosage: UNK
     Dates: start: 20210913
  2. TYVASO [Suspect]
     Active Substance: TREPROSTINIL
     Dosage: 54 ?G, QID
  3. TYVASO [Suspect]
     Active Substance: TREPROSTINIL
     Dosage: UNK
  4. TYVASO [Suspect]
     Active Substance: TREPROSTINIL
     Dosage: UNK
  5. TYVASO [Suspect]
     Active Substance: TREPROSTINIL
     Dosage: UNK
  6. OPSUMIT [Concomitant]
     Active Substance: MACITENTAN
     Indication: Product used for unknown indication
     Dosage: UNK
     Route: 065
     Dates: end: 202211

REACTIONS (6)
  - Renal failure [Not Recovered/Not Resolved]
  - Hypotension [Not Recovered/Not Resolved]
  - Atrial fibrillation [Unknown]
  - Asthenia [Unknown]
  - Pulmonary arterial pressure increased [Unknown]
  - Device power source issue [Unknown]

NARRATIVE: CASE EVENT DATE: 20221101
